FAERS Safety Report 14654474 (Version 1)
Quarter: 2018Q1

REPORT INFORMATION
  Report Type: Spontaneous
  Country: GB (occurrence: GB)
  Receive Date: 20180319
  Receipt Date: 20180319
  Transmission Date: 20180509
  Serious: Yes (Other)
  Sender: FDA-Public Use
  Company Number: GB-BAXTER-2018BAX007127

PATIENT

DRUGS (4)
  1. WATER FOR INJECTION [Suspect]
     Active Substance: WATER
     Indication: MEDICATION DILUTION
     Dosage: VIA MIDLINE IN LV10 DEVICE (CONTINUOUS INFUSION)
     Route: 042
  2. FLUCLOXACILLIN [Suspect]
     Active Substance: FLUCLOXACILLIN
     Indication: PRODUCT USED FOR UNKNOWN INDICATION
     Dosage: VIA MIDLINE IN LV10 DEVICE (CONTINUOUS INFUSION)
     Route: 042
  3. CITRATE BUFFER [Suspect]
     Active Substance: SODIUM CITRATE
     Indication: PRODUCT USED FOR UNKNOWN INDICATION
     Dosage: PH 6.5 - 7.5, VIA MIDLINE IN LV10 DEVICE (CONTINUOUS INFUSION)
     Route: 042
  4. SODIUM CHLORIDE INTRAVENOUS INFUSION BP 0.9% W/V [Suspect]
     Active Substance: SODIUM CHLORIDE
     Indication: MEDICATION DILUTION
     Dosage: VIA MIDLINE IN LV10 DEVICE (CONTINUOUS INFUSION)
     Route: 042

REACTIONS (1)
  - Thrombosis [Unknown]
